FAERS Safety Report 4977864-6 (Version None)
Quarter: 2006Q2

REPORT INFORMATION
  Report Type: 
  Country: None (occurrence: None)
  Receive Date: 20060420
  Receipt Date: 20060403
  Transmission Date: 20061013
  Serious: Yes (Hospitalization, Other)
  Sender: FDA-Public Use
  Company Number: TR-GLAXOSMITHKLINE-B0420086A

PATIENT
  Age: 45 Year
  Sex: Male

DRUGS (2)
  1. LITHIUM CARBONATE [Suspect]
     Dosage: 300MG TWICE PER DAY
     Route: 065
  2. CARBAMAZEPINE [Concomitant]
     Indication: HYPOTHYROIDISM
     Route: 065

REACTIONS (7)
  - BLOOD THYROID STIMULATING HORMONE INCREASED [None]
  - CALCINOSIS [None]
  - HYPOTHYROIDISM [None]
  - NODULE [None]
  - PAPILLARY THYROID CANCER [None]
  - THYROIDITIS [None]
  - THYROXINE DECREASED [None]
